FAERS Safety Report 5844654-1 (Version None)
Quarter: 2008Q3

REPORT INFORMATION
  Report Type: 
  Country: None (occurrence: None)
  Receive Date: 20080814
  Receipt Date: 20080808
  Transmission Date: 20090109
  Serious: Yes (Hospitalization)
  Sender: FDA-Public Use
  Company Number: CA-BAYER-200829758NA

PATIENT
  Age: 29 Year
  Sex: Female
  Weight: 86 kg

DRUGS (3)
  1. SORAFENIB [Suspect]
     Indication: CERVIX CARCINOMA
     Dosage: TOTAL DAILY DOSE: 400 MG  UNIT DOSE: 200 MG
     Route: 048
     Dates: start: 20080517, end: 20080607
  2. CISPLATIN [Suspect]
     Indication: CERVIX CARCINOMA
     Route: 042
     Dates: start: 20080526, end: 20080607
  3. CISPLATIN [Suspect]
     Route: 042
     Dates: start: 20080630, end: 20080717

REACTIONS (1)
  - ANAL FISSURE [None]
